FAERS Safety Report 8895869 (Version 1)
Quarter: 2012Q4

REPORT INFORMATION
  Report Type: 
  Country: AT (occurrence: AT)
  Receive Date: 20121108
  Receipt Date: 20121108
  Transmission Date: 20130627
  Serious: Yes (Other)
  Sender: FDA-Public Use
  Company Number: AT-TEVA-367405ISR

PATIENT
  Age: 65 Year
  Sex: Male

DRUGS (3)
  1. PRAVASTATIN [Suspect]
     Indication: TYPE 2 DIABETES MELLITUS
     Dosage: 20 Milligram Daily;
     Route: 048
     Dates: start: 20111204
  2. PRAVASTATIN [Suspect]
     Indication: HYPERLIPIDAEMIA
  3. METFORMIN [Concomitant]
     Indication: TYPE 2 DIABETES MELLITUS
     Dates: start: 20081209

REACTIONS (3)
  - Sedation [Recovered/Resolved]
  - Sedation [Recovered/Resolved]
  - Headache [Recovered/Resolved]
